FAERS Safety Report 12321378 (Version 8)
Quarter: 2017Q2

REPORT INFORMATION
  Report Type: Spontaneous
  Country: US (occurrence: US)
  Receive Date: 20160502
  Receipt Date: 20170427
  Transmission Date: 20170830
  Serious: Yes (Congenital Anomaly, Other)
  Sender: FDA-Public Use
  Company Number: PHEH2016US010636

PATIENT
  Sex: Female

DRUGS (2)
  1. ZOFRAN [Suspect]
     Active Substance: ONDANSETRON HYDROCHLORIDE
     Indication: FOETAL EXPOSURE DURING PREGNANCY
     Dosage: MOTHER DOSE: 04 MG, UNK
     Route: 064
  2. ZOFRAN [Suspect]
     Active Substance: ONDANSETRON HYDROCHLORIDE
     Indication: FOETAL EXPOSURE DURING PREGNANCY
     Dosage: MOTHER^S DOSE: 4 MG, AS NEEDED (PRN)
     Route: 064

REACTIONS (30)
  - Atrial septal defect [Unknown]
  - Right ventricular dilatation [Unknown]
  - Bicuspid pulmonary valve [Unknown]
  - Pulmonary valve stenosis [Unknown]
  - Congenital scoliosis [Unknown]
  - Anhedonia [Unknown]
  - Tympanic membrane disorder [Unknown]
  - Injury [Unknown]
  - Emotional distress [Unknown]
  - Conjunctivitis [Unknown]
  - Sinusitis [Unknown]
  - Pain [Unknown]
  - Otitis externa [Unknown]
  - Soft tissue mass [Unknown]
  - Pyrexia [Unknown]
  - Left-to-right cardiac shunt [Unknown]
  - Ear infection [Unknown]
  - Limb injury [Unknown]
  - Anxiety [Unknown]
  - Chest pain [Unknown]
  - Headache [Unknown]
  - Foetal exposure during pregnancy [Unknown]
  - Oropharyngeal pain [Unknown]
  - Heart disease congenital [Unknown]
  - Laevocardia [Unknown]
  - Pulmonary valve incompetence [Unknown]
  - Congenital anomaly [Unknown]
  - Tricuspid valve incompetence [Unknown]
  - Costochondritis [Unknown]
  - Depression [Unknown]
